FAERS Safety Report 9113256 (Version 3)
Quarter: 2014Q3

REPORT INFORMATION
  Report Type: Spontaneous
  Country: US (occurrence: US)
  Receive Date: 20130201
  Receipt Date: 20140813
  Transmission Date: 20150326
  Serious: Yes (Hospitalization, Other)
  Sender: FDA-Public Use
  Company Number: US-009507513-1301USA013376

PATIENT
  Sex: Female
  Weight: 95.24 kg

DRUGS (1)
  1. NUVARING [Suspect]
     Active Substance: ETHINYL ESTRADIOL\ETONOGESTREL
     Indication: CONTRACEPTION
     Dosage: UNK
     Route: 067
     Dates: start: 20081004, end: 20090214

REACTIONS (11)
  - Hyperlipidaemia [Unknown]
  - Premenstrual dysphoric disorder [Unknown]
  - Anaemia [Unknown]
  - Left atrial dilatation [Unknown]
  - Female sterilisation [Unknown]
  - Endometrial ablation [Unknown]
  - Menorrhagia [Unknown]
  - Anxiety [Unknown]
  - Phobia of flying [Unknown]
  - Embolic stroke [Not Recovered/Not Resolved]
  - Depression [Unknown]

NARRATIVE: CASE EVENT DATE: 20090213
